FAERS Safety Report 6684990-2 (Version None)
Quarter: 2010Q2

REPORT INFORMATION
  Report Type: 
  Country: None (occurrence: None)
  Receive Date: 20100416
  Receipt Date: 20100407
  Transmission Date: 20101027
  Serious: Yes (Other)
  Sender: FDA-Public Use
  Company Number: US-AMGEN-KDL397022

PATIENT
  Sex: Male
  Weight: 111.7 kg

DRUGS (10)
  1. PROCRIT [Suspect]
     Indication: MYELODYSPLASTIC SYNDROME
     Route: 058
     Dates: start: 20061115, end: 20100315
  2. ARANESP [Suspect]
     Indication: ANAEMIA OF MALIGNANT DISEASE
     Dates: start: 20050330, end: 20061106
  3. GEMFIBROZIL [Concomitant]
  4. ACTOS [Concomitant]
  5. GABAPENTIN [Concomitant]
  6. ALENDRONATE SODIUM [Concomitant]
  7. DIOVAN [Concomitant]
  8. FOSAMAX [Concomitant]
  9. ALLOPURINOL [Concomitant]
     Dates: start: 20080501
  10. FUROSEMIDE [Concomitant]

REACTIONS (2)
  - APLASIA PURE RED CELL [None]
  - RENAL IMPAIRMENT [None]
